FAERS Safety Report 15902848 (Version 3)
Quarter: 2019Q1

REPORT INFORMATION
  Report Type: Spontaneous
  Country: DE (occurrence: DE)
  Receive Date: 20190202
  Receipt Date: 20190221
  Transmission Date: 20190417
  Serious: Yes (Hospitalization)
  Sender: FDA-Public Use
  Company Number: DE-ACCORD-105417

PATIENT
  Age: 68 Year
  Sex: Male
  Weight: 76 kg

DRUGS (4)
  1. HYDROCHLOROTHIAZIDE. [Suspect]
     Active Substance: HYDROCHLOROTHIAZIDE
     Indication: PRODUCT USED FOR UNKNOWN INDICATION
     Dosage: 25 MG, 1-0-0, TABLETS
     Route: 048
  2. NITROLINGUAL [Concomitant]
     Active Substance: NITROGLYCERIN
     Dosage: 2 HUB B.B., DOSIERAEROSOL
     Route: 048
  3. AMLODIPINE [Suspect]
     Active Substance: AMLODIPINE BESYLATE
     Indication: PRODUCT USED FOR UNKNOWN INDICATION
     Dosage: 5 MG, 1-0-0, TABLETS
     Route: 048
  4. ASPIRIN. [Concomitant]
     Active Substance: ASPIRIN
     Dosage: 100 MG, 1-0-0, TABLETTEN,100 MG, QD
     Route: 048

REACTIONS (5)
  - Dyspnoea [Unknown]
  - Angina pectoris [Unknown]
  - Tachycardia [Unknown]
  - Product prescribing error [Unknown]
  - Hypertension [Unknown]
